FAERS Safety Report 9244662 (Version 1)
Quarter: 2013Q1

REPORT INFORMATION
  Report Type: Spontaneous
  Country: US (occurrence: None)
  Receive Date: 20121130
  Receipt Date: 20121130
  Transmission Date: 20140127
  Serious: Yes (Other)
  Sender: FDA-Public Use
  Company Number: PHEH2012US012567

PATIENT
  Sex: Male

DRUGS (1)
  1. LAMISIL [Suspect]
     Indication: ONYCHOMYCOSIS
     Route: 048
     Dates: start: 20120119, end: 201202

REACTIONS (10)
  - Jaundice [None]
  - Yellow skin [None]
  - Liver function test abnormal [None]
  - Malaise [None]
  - Decreased appetite [None]
  - Weight decreased [None]
  - Faeces pale [None]
  - Chromaturia [None]
  - Pruritus [None]
  - Lethargy [None]
